FAERS Safety Report 11088827 (Version 5)
Quarter: 2019Q4

REPORT INFORMATION
  Report Type: Report from Study
  Country: US (occurrence: US)
  Receive Date: 20150504
  Receipt Date: 20191018
  Transmission Date: 20200122
  Serious: Yes (Hospitalization, Disabling, Other)
  Sender: FDA-Public Use
  Company Number: US-SA-2015SA057495

PATIENT
  Age: 55 Year
  Sex: Female

DRUGS (38)
  1. BACLOFEN. [Concomitant]
     Active Substance: BACLOFEN
     Dosage: 10 MG, TID
     Route: 048
  2. CALCIUM +D3 [Concomitant]
     Active Substance: CALCIUM\CHOLECALCIFEROL
     Dosage: 1 AT NOON 2 AT HS
     Route: 065
  3. HORIZANT [Concomitant]
     Active Substance: GABAPENTIN ENACARBIL
     Dosage: 600 MG, QD
     Route: 048
  4. KLONOPIN [Concomitant]
     Active Substance: CLONAZEPAM
     Dosage: 1 MG, QD
     Route: 048
  5. WHOLEMEGA [Concomitant]
     Dosage: 500 MG, QD
     Route: 065
  6. ALEMTUZUMAB [Suspect]
     Active Substance: ALEMTUZUMAB
     Dosage: 12 MG,QD
     Route: 041
     Dates: start: 20160418, end: 20160420
  7. DIGESTIVE ADVANTAGE LACTOSE DEFENSE FORMULA [Concomitant]
     Dosage: 500 UNK, PRN
     Route: 048
  8. LEXAPRO [Concomitant]
     Active Substance: ESCITALOPRAM OXALATE
     Dosage: 10 MG, QD
     Route: 048
  9. NITROFURANTOIN MONOHYDRATE MACROCRYSTALS [Concomitant]
     Active Substance: NITROFURANTOIN\NITROFURANTOIN MONOHYDRATE
     Dosage: 100 MG, QD
     Route: 048
  10. PROZAC [Concomitant]
     Active Substance: FLUOXETINE HYDROCHLORIDE
     Dosage: 20 MG, QD
     Route: 048
  11. AMPYRA [Concomitant]
     Active Substance: DALFAMPRIDINE
     Dosage: 10 MG, BID
     Route: 048
  12. CHELATED MAGNESIUM [MAGNESIUM CHELATE] [Concomitant]
     Dosage: 200 MG, 2QHS
     Route: 065
  13. DALFAMPRIDINE. [Concomitant]
     Active Substance: DALFAMPRIDINE
     Dosage: 10 MG, BID
     Route: 048
  14. MULTIVITAMINS [VITAMINS NOS] [Concomitant]
     Active Substance: VITAMINS
     Dosage: UNK UNK, QD
     Route: 065
  15. NEUPRO [Concomitant]
     Active Substance: ROTIGOTINE
     Dosage: 4 MG, QD
     Route: 062
  16. PROLIA [Concomitant]
     Active Substance: DENOSUMAB
     Dosage: 60 MG/ML, TWICE YEARLY
     Route: 065
  17. VITAMIN C [Concomitant]
     Active Substance: ASCORBIC ACID
     Dosage: 500 MG, BID
     Route: 048
  18. VITAMIN D3 [Concomitant]
     Active Substance: CHOLECALCIFEROL
     Dosage: 3000 U, TID
     Route: 048
  19. HYALURONIC ACID WITH COLLAGEN [Concomitant]
     Dosage: UNK UNK, QD
     Route: 065
  20. LEVOTHYROXINE. [Concomitant]
     Active Substance: LEVOTHYROXINE
     Dosage: 75 UG, QD
     Route: 048
  21. MELATONIN [Concomitant]
     Active Substance: MELATONIN
     Dosage: 10 MG, QHS
     Route: 048
  22. VITAMIN K [MENADIONE] [Concomitant]
     Active Substance: MENADIONE
     Route: 065
  23. ZINC PICOLINATE [Concomitant]
     Active Substance: ZINC PICOLINATE
     Dosage: 60 MG, QD
     Route: 048
  24. METHENAMINE HIPPURATE. [Concomitant]
     Active Substance: METHENAMINE HIPPURATE
     Dosage: 1 DF, BID
     Route: 048
  25. PRIMIDONE. [Concomitant]
     Active Substance: PRIMIDONE
     Dosage: 250 MG, BID
     Route: 048
  26. BUPROPION HYDROCHLORIDE. [Concomitant]
     Active Substance: BUPROPION HYDROCHLORIDE
     Dosage: 150 MG, QD
     Route: 048
  27. D-MANNOSE [Concomitant]
     Dosage: 500 MG, 2 AT HS
     Route: 065
  28. KLONOPIN [Concomitant]
     Active Substance: CLONAZEPAM
     Dosage: 0.5 MG, QD
     Route: 048
  29. L-CITRULLINE [Concomitant]
     Active Substance: CITRULLINE
     Dosage: 750 MG, QD
     Route: 065
  30. RESTORIL [Concomitant]
     Active Substance: TEMAZEPAM
     Dosage: 30 MG, HS
     Route: 065
  31. ALEMTUZUMAB [Suspect]
     Active Substance: ALEMTUZUMAB
     Indication: MULTIPLE SCLEROSIS
     Dosage: 12 MG,QD
     Route: 041
     Dates: start: 20150413, end: 20150417
  32. MAG GLYCINATE [Concomitant]
     Dosage: 100 MG, 2 AT HS
     Route: 048
  33. MYRBETRIQ [Concomitant]
     Active Substance: MIRABEGRON
     Dosage: 25 MG, QD
     Route: 048
  34. ULTRAM [Concomitant]
     Active Substance: TRAMADOL HYDROCHLORIDE
     Dosage: 200 MG, QD
     Route: 048
  35. FOCALIN [Concomitant]
     Active Substance: DEXMETHYLPHENIDATE HYDROCHLORIDE
     Dosage: 10 MG, BID
     Route: 048
  36. KRILL OIL [Concomitant]
     Active Substance: DIETARY SUPPLEMENT\KRILL OIL
     Dosage: 500 MG, QD
     Route: 048
  37. MAGNESIUM OXIDE HEAVY [Concomitant]
     Active Substance: MAGNESIUM OXIDE
     Dosage: 400 MG, PRN
     Route: 048
  38. VITAMIN B COMPLEX [Concomitant]
     Active Substance: CYANOCOBALAMIN\DEXPANTHENOL\NIACINAMIDE\PYRIDOXINE HYDROCHLORIDE\RIBOFLAVIN 5^-PHOSPHATE SODIUM\THIAMINE HYDROCHLORIDE\VITAMIN B COMPLEX
     Dosage: UNK UNK, QD
     Route: 065

REACTIONS (18)
  - Urinary tract infection [Unknown]
  - Limb injury [Unknown]
  - Pneumonia [Recovered/Resolved]
  - White blood cell count decreased [Not Recovered/Not Resolved]
  - Fall [Unknown]
  - Asthenia [Recovered/Resolved]
  - Mobility decreased [Not Recovered/Not Resolved]
  - Immune system disorder [Unknown]
  - Pyrexia [Recovered/Resolved]
  - Lower limb fracture [Recovered/Resolved]
  - Globulins decreased [Unknown]
  - Joint injury [Recovered/Resolved]
  - Muscle spasticity [Not Recovered/Not Resolved]
  - Autoimmune disorder [Unknown]
  - Immunosuppression [Not Recovered/Not Resolved]
  - Contusion [Unknown]
  - Foot fracture [Recovered/Resolved]
  - Joint injury [Unknown]

NARRATIVE: CASE EVENT DATE: 2015
